FAERS Safety Report 5816946-3 (Version None)
Quarter: 2008Q3

REPORT INFORMATION
  Report Type: 
  Country: None (occurrence: None)
  Receive Date: 20080722
  Receipt Date: 20080714
  Transmission Date: 20090109
  Serious: Yes (Hospitalization, Other)
  Sender: FDA-Public Use
  Company Number: PHHY2008GT13882

PATIENT
  Age: 60 Year
  Sex: Male

DRUGS (5)
  1. TRILEPTAL [Suspect]
     Indication: CONVULSION
     Dosage: 300 MG, Q12H
  2. CLONAZEPAM [Concomitant]
     Dosage: ONE TABLET NIGHT
     Route: 048
  3. LANSOPRAZOLE [Concomitant]
     Dosage: 30 MG
     Route: 048
  4. ALENDRONATE SODIUM [Concomitant]
  5. VALPROATE SODIUM [Concomitant]
     Dosage: 250 MG, Q12H
     Route: 048

REACTIONS (11)
  - ABNORMAL BEHAVIOUR [None]
  - ANAEMIA [None]
  - ASPARTATE AMINOTRANSFERASE INCREASED [None]
  - BLOOD ALKALINE PHOSPHATASE INCREASED [None]
  - BLOOD LACTATE DEHYDROGENASE INCREASED [None]
  - GAMMA-GLUTAMYLTRANSFERASE INCREASED [None]
  - HYPOCALCAEMIA [None]
  - HYPOCHLORAEMIA [None]
  - HYPONATRAEMIA [None]
  - HYPOTHYROIDISM [None]
  - SOMNOLENCE [None]
